FAERS Safety Report 11626349 (Version 1)
Quarter: 2015Q4

REPORT INFORMATION
  Report Type: Spontaneous
  Country: US (occurrence: US)
  Receive Date: 20151013
  Receipt Date: 20151013
  Transmission Date: 20160304
  Serious: No
  Sender: FDA-Public Use
  Company Number: US-ROCHE-1587876

PATIENT
  Sex: Female

DRUGS (27)
  1. ROPINIROLE. [Concomitant]
     Active Substance: ROPINIROLE
     Route: 065
  2. ASMANEX [Concomitant]
     Active Substance: MOMETASONE FUROATE
  3. NAPROSYN [Suspect]
     Active Substance: NAPROXEN
     Indication: PRODUCT USED FOR UNKNOWN INDICATION
     Route: 065
  4. LEVOTHYROXINE. [Concomitant]
     Active Substance: LEVOTHYROXINE
     Route: 065
  5. FUROSEMIDE. [Concomitant]
     Active Substance: FUROSEMIDE
     Route: 065
  6. FENOFIBRATE. [Concomitant]
     Active Substance: FENOFIBRATE
     Route: 065
  7. LYRICA [Concomitant]
     Active Substance: PREGABALIN
     Route: 065
  8. ACETAMINOPHEN. [Concomitant]
     Active Substance: ACETAMINOPHEN
     Route: 065
  9. EXCEDRIN [Concomitant]
     Active Substance: ACETAMINOPHEN\ASPIRIN\CAFFEINE
     Dosage: 250 / 250 / 65 CAPLETS
     Route: 065
  10. KEFLEX [Concomitant]
     Active Substance: CEPHALEXIN
  11. CYCLOBENZAPRINE [Concomitant]
     Active Substance: CYCLOBENZAPRINE
     Route: 065
  12. VITAMIN D2 [Concomitant]
     Active Substance: ERGOCALCIFEROL
  13. PSEUDOEPHEDRINE [Concomitant]
     Active Substance: PSEUDOEPHEDRINE
     Route: 065
  14. IBUPROFEN. [Concomitant]
     Active Substance: IBUPROFEN
     Route: 065
  15. SODIUM CHLORIDE. [Concomitant]
     Active Substance: SODIUM CHLORIDE
     Route: 065
  16. METHYLPREDNISOLONE. [Concomitant]
     Active Substance: METHYLPREDNISOLONE
  17. LISINOPRIL HIDROCLOROTIAZIDA [Concomitant]
     Dosage: 20 / 25MG TABLETS
     Route: 065
  18. NASONEX [Concomitant]
     Active Substance: MOMETASONE FUROATE
     Route: 065
  19. CETIRIZINE HYDROCHLORIDE. [Concomitant]
     Active Substance: CETIRIZINE HYDROCHLORIDE
     Route: 065
  20. ERYTHROMYCIN. [Concomitant]
     Active Substance: ERYTHROMYCIN
  21. OXYMETAZOLINE [Concomitant]
     Active Substance: OXYMETAZOLINE
     Route: 065
  22. CYMBALTA [Concomitant]
     Active Substance: DULOXETINE HYDROCHLORIDE
     Route: 065
  23. DOXYCYCLINE. [Concomitant]
     Active Substance: DOXYCYCLINE
  24. OMEPRAZOLE MAGNESIUM. [Concomitant]
     Active Substance: OMEPRAZOLE MAGNESIUM
     Route: 065
  25. BAUSCH + LOMB ADVANCED EYE RELIEF EYE WASH [Concomitant]
     Active Substance: WATER
  26. TIZANIDINE. [Concomitant]
     Active Substance: TIZANIDINE
  27. DOCUSATE SODIUM. [Concomitant]
     Active Substance: DOCUSATE SODIUM
     Route: 065

REACTIONS (1)
  - Drug hypersensitivity [Unknown]
